FAERS Safety Report 6903034-8 (Version None)
Quarter: 2010Q3

REPORT INFORMATION
  Report Type: 
  Country: None (occurrence: None)
  Receive Date: 20100803
  Receipt Date: 20080701
  Transmission Date: 20110219
  Serious: No
  Sender: FDA-Public Use
  Company Number: US-PFIZER INC-2008041438

PATIENT
  Sex: Female

DRUGS (5)
  1. LYRICA [Suspect]
     Indication: HERPES ZOSTER
     Dates: start: 20080507
  2. GABAPENTIN [Suspect]
  3. PANADEINE CO [Concomitant]
  4. OTHER DERMATOLOGICAL PREPARATIONS [Concomitant]
  5. PREDNISOLONE [Concomitant]

REACTIONS (6)
  - DIPLOPIA [None]
  - DIZZINESS [None]
  - HEADACHE [None]
  - HERPES ZOSTER [None]
  - HYPERSOMNIA [None]
  - NAUSEA [None]
